FAERS Safety Report 11820820 (Version 1)
Quarter: 2015Q4

REPORT INFORMATION
  Report Type: Spontaneous
  Country: US (occurrence: US)
  Receive Date: 20151210
  Receipt Date: 20151210
  Transmission Date: 20160305
  Serious: No
  Sender: FDA-Public Use
  Company Number: US-JNJFOC-20150716857

PATIENT
  Sex: Female

DRUGS (8)
  1. IMBRUVICA [Suspect]
     Active Substance: IBRUTINIB
     Indication: CHRONIC LYMPHOCYTIC LEUKAEMIA
     Route: 048
     Dates: start: 20141108
  2. SYNTHROID [Concomitant]
     Active Substance: LEVOTHYROXINE SODIUM
  3. BENICAR [Concomitant]
     Active Substance: OLMESARTAN MEDOXOMIL
  4. VITAMIN B12 [Concomitant]
     Active Substance: CYANOCOBALAMIN
  5. TOPROL XL [Concomitant]
     Active Substance: METOPROLOL SUCCINATE
  6. PROTONIX [Concomitant]
     Active Substance: PANTOPRAZOLE SODIUM
  7. MULTIVITAMINES [Concomitant]
     Active Substance: VITAMINS
  8. NAPROXEN. [Concomitant]
     Active Substance: NAPROXEN

REACTIONS (3)
  - Fatigue [Unknown]
  - Muscular weakness [Unknown]
  - White blood cell count decreased [Unknown]
